FAERS Safety Report 25086804 (Version 1)
Quarter: 2025Q1

REPORT INFORMATION
  Report Type: Spontaneous
  Country: JP (occurrence: JP)
  Receive Date: 20250318
  Receipt Date: 20250318
  Transmission Date: 20250408
  Serious: Yes (Other)
  Sender: RANBAXY
  Company Number: JP-SUN PHARMACEUTICAL INDUSTRIES LTD-2025R1-498772

PATIENT
  Age: 41 Year
  Sex: Male

DRUGS (1)
  1. DULOXETINE [Suspect]
     Active Substance: DULOXETINE
     Indication: Hypoaesthesia
     Dosage: 20 MILLIGRAM, QD
     Route: 065

REACTIONS (1)
  - Parkinsonism [Recovering/Resolving]
